FAERS Safety Report 5108291-9 (Version None)
Quarter: 2006Q3

REPORT INFORMATION
  Report Type: 
  Country: None (occurrence: None)
  Receive Date: 20060914
  Receipt Date: 20060914
  Transmission Date: 20061208
  Serious: Yes (Other)
  Sender: FDA-Public Use
  Company Number: None

PATIENT
  Sex: Male
  Weight: 98.8842 kg

DRUGS (3)
  1. ZIPRAZIDONE 40 MG [Suspect]
     Indication: SCHIZOAFFECTIVE DISORDER
     Dosage: PO 1 AM + 2 PM W/ MEALS
     Route: 048
     Dates: start: 20060216, end: 20060311
  2. LORAZEPAM [Concomitant]
  3. PAROXETINE HCL [Concomitant]

REACTIONS (1)
  - AKATHISIA [None]
